FAERS Safety Report 8662587 (Version 5)
Quarter: 2012Q4

REPORT INFORMATION
  Report Type: Report from Study
  Country: US (occurrence: None)
  Receive Date: 20120627
  Receipt Date: 20120820
  Transmission Date: 20130627
  Serious: Yes (Hospitalization, Other)
  Sender: FDA-Public Use
  Company Number: US-JNJFOC-20120606872

PATIENT
  Age: 62 Year
  Sex: Male
  Weight: 108 kg

DRUGS (2)
  1. DECITABINE [Suspect]
     Indication: ACUTE MYELOID LEUKAEMIA
     Dosage: 20 MG/M2, INTRAVENOUS
     Route: 042
     Dates: start: 20120518, end: 20120528
  2. BORTEZOMIB [Suspect]
     Indication: ACUTE MYELOID LEUKAEMIA
     Dosage: 1.3 MG/M2, SUBCUTANEOUS
     Route: 058
     Dates: start: 20120518, end: 20120528

REACTIONS (13)
  - Hypophosphataemia [None]
  - Arthritis bacterial [None]
  - Febrile neutropenia [None]
  - Fluid overload [None]
  - Post procedural complication [None]
  - Non-cardiac chest pain [None]
  - Fatigue [None]
  - Dizziness [None]
  - Dyspnoea exertional [None]
  - Blood pressure decreased [None]
  - Haemoglobin decreased [None]
  - Dyspepsia [None]
  - Drug interaction [None]
